FAERS Safety Report 16811843 (Version 1)
Quarter: 2019Q3

REPORT INFORMATION
  Report Type: Spontaneous
  Country: IN (occurrence: IN)
  Receive Date: 20190916
  Receipt Date: 20190916
  Transmission Date: 20191005
  Serious: Yes (Other)
  Sender: FDA-Public Use
  Company Number: IN-BIOVITRUM-2019IN2951

PATIENT

DRUGS (1)
  1. ORFADIN [Suspect]
     Active Substance: NITISINONE
     Indication: TYROSINAEMIA
     Dosage: 0.7-1.0 MGM/KG/DAY DEPENDING ON THE BLOOD NTBC LEVEL

REACTIONS (2)
  - Liver transplant [Unknown]
  - Hepatocellular carcinoma [Unknown]
